FAERS Safety Report 22949628 (Version 3)
Quarter: 2023Q4

REPORT INFORMATION
  Report Type: Report from Study
  Country: KR (occurrence: None)
  Receive Date: 20230915
  Receipt Date: 20231108
  Transmission Date: 20240110
  Serious: Yes (Hospitalization)
  Sender: FDA-Public Use
  Company Number: KR-ROCHE-3421134

PATIENT
  Age: 73 Year
  Sex: Female
  Weight: 57.9 kg

DRUGS (18)
  1. FARICIMAB [Suspect]
     Active Substance: FARICIMAB
     Indication: Polypoidal choroidal vasculopathy
     Dosage: 10/AUG/2023:DATE OF MOST RECENT DOSE OF STUDY DRUG PRIOR TO AE
     Route: 050
     Dates: start: 20230517
  2. LEVOTHYROXINE SODIUM [Concomitant]
     Active Substance: LEVOTHYROXINE SODIUM
     Route: 048
     Dates: start: 20220302
  3. VYSTAR [Concomitant]
     Indication: Hyperlipidaemia
     Route: 048
     Dates: start: 20220302
  4. REFRESH PLUS [Concomitant]
     Active Substance: CARBOXYMETHYLCELLULOSE SODIUM
     Route: 047
     Dates: start: 20230515
  5. CARBOMER [Concomitant]
     Active Substance: CARBOMER
     Route: 047
     Dates: start: 20230515
  6. MAGNESIUM HYDROXIDE [Concomitant]
     Active Substance: MAGNESIUM HYDROXIDE
     Route: 048
     Dates: start: 20230721
  7. MILNACIPRAN HYDROCHLORIDE [Concomitant]
     Active Substance: MILNACIPRAN HYDROCHLORIDE
     Route: 048
     Dates: start: 20230721
  8. LEVOPHAM [Concomitant]
     Route: 048
     Dates: start: 20230720
  9. FLINDA [Concomitant]
     Indication: Herpes zoster
     Route: 048
     Dates: start: 20230805
  10. BEARCET [Concomitant]
     Indication: Herpes zoster
     Route: 048
     Dates: start: 20230807
  11. VASELINE PURE [Concomitant]
     Active Substance: PETROLATUM
     Indication: Herpes zoster
     Route: 062
     Dates: start: 20230911, end: 20230918
  12. GANAKHAN [Concomitant]
  13. ULTRACET ER SEMI [Concomitant]
     Indication: Herpes zoster
     Route: 048
     Dates: start: 20230914, end: 20230914
  14. MAGNESIUM HYDROXIDE [Concomitant]
     Active Substance: MAGNESIUM HYDROXIDE
     Route: 048
     Dates: start: 20230915, end: 20231013
  15. DIETARY SUPPLEMENT\HERBALS\MILK THISTLE [Concomitant]
     Active Substance: MILK THISTLE
     Indication: Liver function test increased
     Route: 048
     Dates: start: 20230917, end: 20231013
  16. URSODIOL [Concomitant]
     Active Substance: URSODIOL
     Route: 048
     Dates: start: 20230917, end: 20231013
  17. LYRICA [Concomitant]
     Active Substance: PREGABALIN
     Route: 048
     Dates: start: 20230915, end: 20231013
  18. EZETIMIBE\ROSUVASTATIN [Concomitant]
     Active Substance: EZETIMIBE\ROSUVASTATIN
     Indication: Hyperlipidaemia
     Route: 048
     Dates: start: 20231010

REACTIONS (1)
  - Pulmonary embolism [Recovered/Resolved]

NARRATIVE: CASE EVENT DATE: 20230910
